FAERS Safety Report 10186753 (Version 1)
Quarter: 2014Q2

REPORT INFORMATION
  Report Type: Spontaneous
  Country: US (occurrence: US)
  Receive Date: 20140521
  Receipt Date: 20140521
  Transmission Date: 20141212
  Serious: Yes (Other)
  Sender: FDA-Public Use
  Company Number: PHHY2014US058811

PATIENT
  Age: 48 Year
  Sex: Male

DRUGS (1)
  1. IMATINIB [Suspect]
     Indication: GASTROINTESTINAL STROMAL TUMOUR
     Dosage: 400 MG, DAILY
     Dates: start: 200702

REACTIONS (2)
  - Dystrophic calcification [Unknown]
  - Calcinosis [Unknown]
